FAERS Safety Report 4563855-6 (Version None)
Quarter: 2005Q1

REPORT INFORMATION
  Report Type: 
  Country: None (occurrence: None)
  Receive Date: 20050128
  Receipt Date: 20050125
  Transmission Date: 20050727
  Serious: Yes (Hospitalization)
  Sender: FDA-Public Use
  Company Number: PHBS2005JP01331

PATIENT
  Age: 12 Year
  Sex: Female

DRUGS (1)
  1. TEGRETOL [Suspect]
     Dosage: 250 MG/DAY
     Route: 048
     Dates: start: 20041106, end: 20050120

REACTIONS (2)
  - CONVULSION [None]
  - RASH [None]
